FAERS Safety Report 20367956 (Version 1)
Quarter: 2022Q1

REPORT INFORMATION
  Report Type: Spontaneous
  Country: US (occurrence: US)
  Receive Date: 20220124
  Receipt Date: 20220124
  Transmission Date: 20220423
  Serious: Yes (Other)
  Sender: FDA-Public Use
  Company Number: US-CELGENE-USA-20220105419

PATIENT
  Sex: Male

DRUGS (2)
  1. POMALYST [Suspect]
     Active Substance: POMALIDOMIDE
     Indication: Plasma cell myeloma in remission
     Dosage: 4 MILLIGRAM
     Route: 048
     Dates: start: 202112
  2. POMALYST [Suspect]
     Active Substance: POMALIDOMIDE
     Indication: Plasma cell myeloma

REACTIONS (6)
  - Hypokalaemia [Unknown]
  - Gilbert^s syndrome [Unknown]
  - Burning sensation [Unknown]
  - White blood cell count decreased [Unknown]
  - Paraesthesia [Unknown]
  - Peripheral swelling [Unknown]
